FAERS Safety Report 25697940 (Version 2)
Quarter: 2025Q3

REPORT INFORMATION
  Report Type: Spontaneous
  Country: US (occurrence: US)
  Receive Date: 20250819
  Receipt Date: 20250829
  Transmission Date: 20251021
  Serious: No
  Sender: ELI LILLY AND COMPANY
  Company Number: US-ELI_LILLY_AND_COMPANY-US202508007374

PATIENT
  Age: 17 Year
  Sex: Female
  Weight: 74.39 kg

DRUGS (2)
  1. LYUMJEV [Suspect]
     Active Substance: INSULIN LISPRO-AABC
     Indication: Type 1 diabetes mellitus
     Route: 065
     Dates: start: 20240801
  2. PREDNISONE [Suspect]
     Active Substance: PREDNISONE
     Indication: Idiopathic urticaria
     Route: 065

REACTIONS (5)
  - Nausea [Not Recovered/Not Resolved]
  - Idiopathic urticaria [Unknown]
  - Blood glucose increased [Unknown]
  - Heart rate increased [Unknown]
  - Infusion site urticaria [Unknown]

NARRATIVE: CASE EVENT DATE: 20250721
